FAERS Safety Report 23088422 (Version 2)
Quarter: 2023Q4

REPORT INFORMATION
  Report Type: Report from Study
  Country: CA (occurrence: CA)
  Receive Date: 20231020
  Receipt Date: 20231206
  Transmission Date: 20240110
  Serious: Yes (Other)
  Sender: FDA-Public Use
  Company Number: CA-JNJFOC-20231023840

PATIENT
  Sex: Female

DRUGS (1)
  1. REMICADE [Suspect]
     Active Substance: INFLIXIMAB
     Indication: Crohn^s disease
     Route: 041
     Dates: start: 20151021

REACTIONS (3)
  - Urinary tract infection fungal [Recovered/Resolved]
  - Urethral haemorrhage [Not Recovered/Not Resolved]
  - Suprapubic pain [Not Recovered/Not Resolved]
